FAERS Safety Report 4963919-9 (Version None)
Quarter: 2006Q1

REPORT INFORMATION
  Report Type: 
  Country: None (occurrence: None)
  Receive Date: 20060330
  Receipt Date: 20060317
  Transmission Date: 20060701
  Serious: Yes (Hospitalization)
  Sender: FDA-Public Use
  Company Number: 06-000243

PATIENT
  Age: 84 Year
  Sex: Female

DRUGS (1)
  1. PHENAZOPYRIDINE HCL TAB [Suspect]
     Indication: URINARY TRACT INFECTION
     Dosage: 100 MG QID ORAL
     Route: 048

REACTIONS (4)
  - ACCIDENTAL EXPOSURE [None]
  - BACTERIURIA [None]
  - SIMILAR REACTION ON PREVIOUS EXPOSURE TO DRUG [None]
  - SULPHAEMOGLOBINAEMIA [None]
